FAERS Safety Report 10149358 (Version 1)
Quarter: 2014Q2

REPORT INFORMATION
  Report Type: Spontaneous
  Country: US (occurrence: US)
  Receive Date: 20140502
  Receipt Date: 20140502
  Transmission Date: 20141212
  Serious: No
  Sender: FDA-Public Use
  Company Number: US-TARO-2014P1000228

PATIENT
  Age: 65 Year
  Sex: Female
  Weight: 63.5 kg

DRUGS (2)
  1. TERCONAZOLE VAGINAL CREAM 0.8% [Suspect]
     Indication: FUNGAL INFECTION
     Route: 067
     Dates: start: 20140107, end: 20140107
  2. VITAMINS [Concomitant]

REACTIONS (4)
  - Application site pain [Not Recovered/Not Resolved]
  - Headache [Not Recovered/Not Resolved]
  - Chills [Not Recovered/Not Resolved]
  - Influenza like illness [Not Recovered/Not Resolved]
